FAERS Safety Report 19056782 (Version 1)
Quarter: 2021Q1

REPORT INFORMATION
  Report Type: Spontaneous
  Country: MX (occurrence: MX)
  Receive Date: 20210325
  Receipt Date: 20210325
  Transmission Date: 20210420
  Serious: Yes (Other)
  Sender: FDA-Public Use
  Company Number: MX-009507513-2103MEX006308

PATIENT
  Sex: Female

DRUGS (3)
  1. XIGDUO XR [Suspect]
     Active Substance: DAPAGLIFLOZIN PROPANEDIOL\METFORMIN HYDROCHLORIDE
     Dosage: STRENGTH: 10/1000 MG
  2. METOPROLOL. [Concomitant]
     Active Substance: METOPROLOL
     Indication: HYPERTENSION
     Dosage: SINCE 5?7 YEARS AGO APROX
  3. JANUMET [Suspect]
     Active Substance: METFORMIN HYDROCHLORIDE\SITAGLIPTIN PHOSPHATE
     Indication: DIABETES MELLITUS MANAGEMENT
     Dosage: 1 DOSAGE FORM, QD
     Route: 048

REACTIONS (4)
  - Incorrect dose administered [Unknown]
  - Urinary tract disorder [Unknown]
  - Product prescribing issue [Unknown]
  - Diabetes mellitus inadequate control [Unknown]
